FAERS Safety Report 5399700-9 (Version None)
Quarter: 2007Q3

REPORT INFORMATION
  Report Type: 
  Country: None (occurrence: None)
  Receive Date: 20070727
  Receipt Date: 20070717
  Transmission Date: 20080115
  Serious: Yes (Other)
  Sender: FDA-Public Use
  Company Number: US-PFIZER INC-2007059595

PATIENT
  Sex: Female
  Weight: 61.2 kg

DRUGS (3)
  1. NEURONTIN [Suspect]
     Indication: NEUROPATHY
     Dates: start: 20070601, end: 20070601
  2. LYRICA [Suspect]
     Indication: NEUROPATHY
     Dates: start: 20070612, end: 20070601
  3. XELODA [Concomitant]

REACTIONS (3)
  - ACTIVITIES OF DAILY LIVING IMPAIRED [None]
  - FATIGUE [None]
  - SOMNOLENCE [None]
